FAERS Safety Report 5570335-8 (Version None)
Quarter: 2007Q4

REPORT INFORMATION
  Report Type: 
  Country: None (occurrence: None)
  Receive Date: 20071219
  Receipt Date: 20071219
  Transmission Date: 20080405
  Serious: Yes (Hospitalization, Other)
  Sender: FDA-Public Use
  Company Number: None

PATIENT
  Sex: Female

DRUGS (2)
  1. ATORVASTATIN CALCIUM [Suspect]
     Indication: HYPERLIPIDAEMIA
     Dosage: 80 MG ONCE DAILY PO
     Route: 048
     Dates: start: 20070823, end: 20071003
  2. GEMFIBROZIL [Suspect]
     Indication: HYPERLIPIDAEMIA
     Dosage: 600 MG TWICE DAILY PO
     Route: 048
     Dates: start: 20070823, end: 20071003

REACTIONS (1)
  - RHABDOMYOLYSIS [None]
